FAERS Safety Report 8503531-8 (Version None)
Quarter: 2012Q3

REPORT INFORMATION
  Report Type: 
  Country: None (occurrence: None)
  Receive Date: 20120711
  Receipt Date: 20120709
  Transmission Date: 20120928
  Serious: No
  Sender: FDA-Public Use
  Company Number: US-PFIZER INC-2012142665

PATIENT
  Sex: Female

DRUGS (1)
  1. LYRICA [Suspect]
     Indication: UPPER LIMB FRACTURE
     Dosage: 50 MG, 2X/DAY
     Dates: start: 20120101

REACTIONS (2)
  - RASH [None]
  - PAIN [None]
